FAERS Safety Report 19893276 (Version 1)
Quarter: 2021Q3

REPORT INFORMATION
  Report Type: Spontaneous
  Country: US (occurrence: US)
  Receive Date: 20210928
  Receipt Date: 20210928
  Transmission Date: 20211014
  Serious: No
  Sender: FDA-Public Use
  Company Number: US-SA-2021SA317152

PATIENT
  Age: 59 Year
  Sex: Female

DRUGS (5)
  1. BASAGLAR [Concomitant]
     Active Substance: INSULIN GLARGINE
  2. LOSARTAN. [Concomitant]
     Active Substance: LOSARTAN
  3. XHANCE [Concomitant]
     Active Substance: FLUTICASONE PROPIONATE
  4. DUPIXENT [Suspect]
     Active Substance: DUPILUMAB
     Indication: NASAL POLYPS
     Dosage: 300 MG, QOW
     Route: 058
     Dates: start: 20200220
  5. METFORMIN [Concomitant]
     Active Substance: METFORMIN HYDROCHLORIDE

REACTIONS (2)
  - Nausea [Not Recovered/Not Resolved]
  - Diarrhoea [Not Recovered/Not Resolved]
